FAERS Safety Report 9321800 (Version 1)
Quarter: 2013Q2

REPORT INFORMATION
  Report Type: Spontaneous
  Country: US (occurrence: US)
  Receive Date: 20130531
  Receipt Date: 20130531
  Transmission Date: 20140414
  Serious: No
  Sender: FDA-Public Use
  Company Number: US-009507513-1305USA012049

PATIENT
  Age: 69 Year
  Sex: Female

DRUGS (3)
  1. AZASITE [Suspect]
     Indication: BACTERIAL INFECTION
     Dosage: ONE DROP INTO EACH EYE ONCE A DAY
     Route: 047
     Dates: start: 201303, end: 20130505
  2. AZASITE [Suspect]
     Dosage: UNK
     Dates: start: 20130510
  3. PATADAY [Concomitant]
     Dosage: UNK

REACTIONS (3)
  - Vision blurred [Recovering/Resolving]
  - Drug dose omission [Unknown]
  - Product quality issue [Unknown]
